FAERS Safety Report 6381842-2 (Version None)
Quarter: 2009Q3

REPORT INFORMATION
  Report Type: 
  Country: None (occurrence: None)
  Receive Date: 20090930
  Receipt Date: 20090923
  Transmission Date: 20100115
  Serious: No
  Sender: FDA-Public Use
  Company Number: US-JNJFOC-20090907391

PATIENT
  Sex: Female
  Weight: 53.52 kg

DRUGS (9)
  1. DURAGESIC-100 [Suspect]
     Indication: BACK PAIN
     Route: 062
     Dates: start: 20090701
  2. ESTRADIOL [Concomitant]
     Indication: HYSTERECTOMY
  3. PERCOCET [Concomitant]
     Indication: BREAKTHROUGH PAIN
  4. XANAX [Concomitant]
     Indication: ANXIETY
  5. SOMA [Concomitant]
     Indication: MUSCLE RELAXANT THERAPY
  6. ATENOLOL [Concomitant]
     Indication: HYPERTENSION
  7. FOLIC ACID [Concomitant]
  8. VITAMIN B COMPLEX CAP [Concomitant]
  9. ACIPHEX [Concomitant]
     Indication: DYSPEPSIA
     Route: 065

REACTIONS (1)
  - WRONG TECHNIQUE IN DRUG USAGE PROCESS [None]
